FAERS Safety Report 4505867-4 (Version None)
Quarter: 2004Q4

REPORT INFORMATION
  Report Type: 
  Country: None (occurrence: None)
  Receive Date: 20041025
  Receipt Date: 20040413
  Transmission Date: 20050328
  Serious: Yes (Other)
  Sender: FDA-Public Use
  Company Number: US-JNJFOC-20040302500

PATIENT
  Age: 49 Year
  Sex: Female
  Weight: 71.2147 kg

DRUGS (7)
  1. REMICADE [Suspect]
     Indication: RHEUMATOID ARTHRITIS
     Dosage: 400 + 300 MG, INTRAVENOUS
     Route: 042
     Dates: start: 20021022
  2. REMICADE [Suspect]
     Indication: RHEUMATOID ARTHRITIS
     Dosage: 400 + 300 MG, INTRAVENOUS
     Route: 042
     Dates: start: 20040105
  3. REMICADE [Suspect]
     Indication: RHEUMATOID ARTHRITIS
     Dosage: 400 + 300 MG, INTRAVENOUS
     Route: 042
     Dates: start: 20040322
  4. ARAVA [Suspect]
     Indication: RHEUMATOID ARTHRITIS
     Dosage: 20 MG, 1 IN 1 DAY
     Dates: start: 20010419, end: 20040301
  5. IBUPROFEN [Concomitant]
  6. FOSAMAX [Concomitant]
  7. PREDNISONE [Concomitant]

REACTIONS (1)
  - LEUKOCYTOCLASTIC VASCULITIS [None]
